FAERS Safety Report 25352568 (Version 1)
Quarter: 2025Q2

REPORT INFORMATION
  Report Type: Spontaneous
  Country: IT (occurrence: IT)
  Receive Date: 20250523
  Receipt Date: 20250523
  Transmission Date: 20250717
  Serious: Yes (Hospitalization, Other)
  Sender: MYLAN
  Company Number: IT-MYLANLABS-2025M1043422

PATIENT
  Age: 37 Year
  Sex: Male

DRUGS (10)
  1. SUNITINIB [Suspect]
     Active Substance: SUNITINIB
     Indication: Paraganglion neoplasm
     Dosage: 25 MILLIGRAM, QD
     Dates: start: 202303, end: 2023
  2. SUNITINIB [Suspect]
     Active Substance: SUNITINIB
     Indication: Metastasis
     Dosage: 37.5 MILLIGRAM, QD
     Dates: start: 2023, end: 2023
  3. RAMIPRIL [Suspect]
     Active Substance: RAMIPRIL
     Indication: Hypertension
     Dosage: 5 MILLIGRAM, QD
     Dates: start: 2023, end: 2023
  4. OCTREOTIDE [Suspect]
     Active Substance: OCTREOTIDE
     Indication: Paraganglion neoplasm
  5. OCTREOTIDE [Suspect]
     Active Substance: OCTREOTIDE
     Indication: Metastasis
  6. DOXAZOSIN [Concomitant]
     Active Substance: DOXAZOSIN MESYLATE
     Indication: Hypertension
     Dosage: 12 MILLIGRAM, QD
     Dates: start: 2023
  7. DOXAZOSIN [Concomitant]
     Active Substance: DOXAZOSIN MESYLATE
     Dosage: 20 MILLIGRAM, QD
     Dates: start: 2023
  8. BISOPROLOL [Concomitant]
     Active Substance: BISOPROLOL
     Indication: Hypertension
     Dosage: 2.5 MILLIGRAM, QD
     Dates: start: 2023
  9. AMLODIPINE [Concomitant]
     Active Substance: AMLODIPINE BESYLATE
     Indication: Hypertension
     Dosage: 5 MILLIGRAM, QD
     Dates: start: 2023
  10. AMLODIPINE [Concomitant]
     Active Substance: AMLODIPINE BESYLATE
     Dosage: 10 MILLIGRAM, QD
     Dates: start: 2023

REACTIONS (4)
  - Therapy non-responder [Unknown]
  - Drug ineffective [Unknown]
  - Hypertension [Recovering/Resolving]
  - Disease progression [Unknown]

NARRATIVE: CASE EVENT DATE: 20230101
